FAERS Safety Report 5221623-6 (Version None)
Quarter: 2007Q1

REPORT INFORMATION
  Report Type: 
  Country: None (occurrence: None)
  Receive Date: 20070126
  Receipt Date: 20070126
  Transmission Date: 20070707
  Serious: No
  Sender: FDA-Public Use
  Company Number: None

PATIENT
  Sex: Male
  Weight: 76.2043 kg

DRUGS (4)
  1. LORATAB 10MG ALL BRAND AND GENERIC ONES [Suspect]
     Indication: THORACIC VERTEBRAL FRACTURE
     Dosage: 6 TO 8 A DAY EVERYDAY PO
     Route: 048
     Dates: start: 20010312, end: 20060125
  2. MORPHINE [Suspect]
     Indication: INTERVERTEBRAL DISC PROTRUSION
     Dosage: 2 IN MORNING AND 2 IN EVENING EVERYDAY PO
     Route: 048
     Dates: start: 20040110, end: 20060125
  3. KAIDIAN [Concomitant]
  4. LORA TAB [Concomitant]

REACTIONS (3)
  - DENTAL CARIES [None]
  - ORAL MUCOSAL DISORDER [None]
  - TOOTH DISORDER [None]
